FAERS Safety Report 25462792 (Version 1)
Quarter: 2025Q2

REPORT INFORMATION
  Report Type: Spontaneous
  Country: US (occurrence: None)
  Receive Date: 20250612
  Receipt Date: 20250612
  Transmission Date: 20250717
  Serious: No
  Sender: FDA-CTU
  Company Number: None

PATIENT

DRUGS (1)
  1. BRIUMVI [Suspect]
     Active Substance: UBLITUXIMAB-XIIY

REACTIONS (6)
  - Hot flush [None]
  - Chest discomfort [None]
  - Urticaria [None]
  - Back pain [None]
  - Blood pressure increased [None]
  - Heart rate increased [None]
